FAERS Safety Report 12159243 (Version 2)
Quarter: 2016Q2

REPORT INFORMATION
  Report Type: Spontaneous
  Country: US (occurrence: US)
  Receive Date: 20160308
  Receipt Date: 20160404
  Transmission Date: 20160815
  Serious: Yes (Hospitalization)
  Sender: FDA-Public Use
  Company Number: US-ELI_LILLY_AND_COMPANY-US201602009588

PATIENT
  Sex: Female
  Weight: 97.05 kg

DRUGS (5)
  1. HUMALOG [Suspect]
     Active Substance: INSULIN LISPRO
     Dosage: UNK
  2. HUMALOG [Suspect]
     Active Substance: INSULIN LISPRO
     Dosage: UNK, QD
     Route: 065
  3. HUMALOG [Suspect]
     Active Substance: INSULIN LISPRO
     Indication: TYPE 2 DIABETES MELLITUS
     Dosage: UNK, QD
     Route: 065
  4. HUMALOG [Suspect]
     Active Substance: INSULIN LISPRO
     Dosage: 12-15 U, TID W/MEALS
     Route: 058
  5. LANTUS [Concomitant]
     Active Substance: INSULIN GLARGINE
     Dosage: 45 U, EVERY 8 HRS

REACTIONS (7)
  - Visual acuity reduced [Unknown]
  - Vomiting [Recovered/Resolved]
  - Hyperglycaemia [Recovered/Resolved]
  - Blood glucose increased [Unknown]
  - Diabetes mellitus inadequate control [Unknown]
  - Drug dose omission [Unknown]
  - Weight increased [Unknown]
